FAERS Safety Report 8094292-8 (Version None)
Quarter: 2012Q1

REPORT INFORMATION
  Report Type: 
  Country: None (occurrence: None)
  Receive Date: 20120130
  Receipt Date: 20120119
  Transmission Date: 20120608
  Serious: No
  Sender: FDA-Public Use
  Company Number: US-PFIZER INC-2012015792

PATIENT
  Sex: Male
  Weight: 89.796 kg

DRUGS (11)
  1. MEGACE [Concomitant]
  2. HYDROCHLOROTHIAZIDE [Concomitant]
  3. PREDNISONE [Suspect]
     Dosage: UNK
  4. SIMVASTATIN [Concomitant]
  5. LUPRON [Concomitant]
  6. SOLU-MEDROL [Suspect]
     Indication: HYPERSENSITIVITY
     Dosage: UNK
  7. LISINOPRIL [Concomitant]
  8. SIPULEUCEL-T [Suspect]
     Dosage: 250 MG, SINGLE
     Route: 042
     Dates: start: 20111209, end: 20111209
  9. TAPENTADOL [Concomitant]
     Dosage: UNK
  10. ACETYLSALICYLIC ACID [Concomitant]
  11. DENOSUMAB [Concomitant]

REACTIONS (12)
  - WHITE BLOOD CELL COUNT DECREASED [None]
  - CHILLS [None]
  - DRUG HYPERSENSITIVITY [None]
  - FATIGUE [None]
  - VOMITING [None]
  - HYPERHIDROSIS [None]
  - LOSS OF CONSCIOUSNESS [None]
  - LEUKOCYTOSIS [None]
  - DIARRHOEA [None]
  - MENTAL STATUS CHANGES [None]
  - CONFUSIONAL STATE [None]
  - HYPOTENSION [None]
